FAERS Safety Report 5304781-4 (Version None)
Quarter: 2007Q1

REPORT INFORMATION
  Report Type: 
  Country: None (occurrence: None)
  Receive Date: 20070201
  Receipt Date: 20061109
  Transmission Date: 20070707
  Serious: No
  Sender: FDA-Public Use
  Company Number: 2006PV024947

PATIENT
  Age: 37 Year
  Sex: Female

DRUGS (6)
  1. BYETTA [Suspect]
     Indication: DIABETES MELLITUS NON-INSULIN-DEPENDENT
     Dosage: SEE IMAGE
     Route: 058
     Dates: start: 20061016, end: 20061105
  2. BYETTA [Suspect]
     Indication: DIABETES MELLITUS NON-INSULIN-DEPENDENT
     Dosage: SEE IMAGE
     Route: 058
     Dates: start: 20061106, end: 20061106
  3. BYETTA [Suspect]
     Indication: DIABETES MELLITUS NON-INSULIN-DEPENDENT
     Dosage: SEE IMAGE
     Route: 058
     Dates: start: 20061108, end: 20061108
  4. BYETTA [Suspect]
  5. AVANDIA [Concomitant]
  6. HUMERA [Concomitant]

REACTIONS (5)
  - ABDOMINAL DISTENSION [None]
  - ANOREXIA [None]
  - ARTHRALGIA [None]
  - URTICARIA [None]
  - WEIGHT DECREASED [None]
